FAERS Safety Report 9110347 (Version 1)
Quarter: 2013Q1

REPORT INFORMATION
  Report Type: Report from Study
  Country: BR (occurrence: BR)
  Receive Date: 20130222
  Receipt Date: 20130222
  Transmission Date: 20140127
  Serious: Yes (Death, Other)
  Sender: FDA-Public Use
  Company Number: BR-ROCHE-1190320

PATIENT
  Sex: 0

DRUGS (3)
  1. PEG-INTERFERON ALFA 2A [Suspect]
     Indication: CHRONIC HEPATITIS C
     Route: 058
  2. RIBAVIRIN [Suspect]
     Indication: CHRONIC HEPATITIS C
     Dosage: 1,000 OR 1,250 MG, DEPENDING ON BODY WEIGHT, DAILY
     Route: 048
  3. PEGINTERFERON ALFA-2B [Suspect]
     Indication: CHRONIC HEPATITIS C
     Route: 058

REACTIONS (12)
  - Death [Fatal]
  - Hepatic cirrhosis [Fatal]
  - Acute myocardial infarction [Fatal]
  - Acute respiratory failure [Fatal]
  - Sepsis [Fatal]
  - Pneumonia [Fatal]
  - Hepatocellular carcinoma [Unknown]
  - Anaemia [Unknown]
  - Thrombocytopenia [Unknown]
  - Neutropenia [Unknown]
  - Psoriasis [Unknown]
  - Renal failure acute [Unknown]
